FAERS Safety Report 7071966-9 (Version None)
Quarter: 2010Q4

REPORT INFORMATION
  Report Type: 
  Country: None (occurrence: None)
  Receive Date: 20101029
  Receipt Date: 20091216
  Transmission Date: 20110411
  Serious: No
  Sender: FDA-Public Use
  Company Number: A0816514A

PATIENT
  Age: 58 Year
  Sex: Female
  Weight: 61.4 kg

DRUGS (5)
  1. ADVAIR DISKUS 100/50 [Suspect]
     Dosage: 1PUFF TWICE PER DAY
     Route: 055
     Dates: start: 20091030, end: 20091117
  2. ZITHROMAX [Concomitant]
     Route: 048
  3. NYSTATIN [Concomitant]
  4. CORTISONE ACETATE INJ [Concomitant]
     Dosage: 2CC SINGLE DOSE
     Route: 030
     Dates: start: 20091030, end: 20091030
  5. CELESTONE [Concomitant]

REACTIONS (3)
  - CANDIDIASIS [None]
  - FATIGUE [None]
  - PHARYNGITIS [None]
